FAERS Safety Report 4713630-4 (Version None)
Quarter: 2005Q3

REPORT INFORMATION
  Report Type: 
  Country: None (occurrence: None)
  Receive Date: 20050712
  Receipt Date: 20050623
  Transmission Date: 20060218
  Serious: Yes (Other)
  Sender: FDA-Public Use
  Company Number: USA0506101121

PATIENT
  Age: 45 Year
  Sex: Female
  Weight: 72 kg

DRUGS (3)
  1. HUMULIN R [Suspect]
     Indication: DIABETIC COMA
     Dosage: 75 U DAY
     Dates: start: 20050401
  2. HUMULIN N [Suspect]
     Indication: DIABETIC COMA
     Dates: start: 20050401
  3. LANTUS [Concomitant]

REACTIONS (4)
  - BLOOD GLUCOSE INCREASED [None]
  - DIPLOPIA [None]
  - FALL [None]
  - VISION BLURRED [None]
